FAERS Safety Report 17367851 (Version 1)
Quarter: 2020Q1

REPORT INFORMATION
  Report Type: Spontaneous
  Country: US (occurrence: US)
  Receive Date: 20200203
  Receipt Date: 20200203
  Transmission Date: 20200409
  Serious: No
  Sender: FDA-Public Use
  Company Number: None

PATIENT
  Age: 76 Year
  Sex: Male
  Weight: 111 kg

DRUGS (2)
  1. VANCOMYCIN [Suspect]
     Active Substance: VANCOMYCIN
     Route: 042
     Dates: start: 20200106, end: 20200113
  2. VANCOMYCIN [Suspect]
     Active Substance: VANCOMYCIN
     Route: 042
     Dates: start: 20200106, end: 20200114

REACTIONS (4)
  - Stevens-Johnson syndrome [None]
  - Blister [None]
  - Ocular discomfort [None]
  - Oropharyngeal blistering [None]

NARRATIVE: CASE EVENT DATE: 20200113
